FAERS Safety Report 4445987-6 (Version None)
Quarter: 2004Q3

REPORT INFORMATION
  Report Type: 
  Country: None (occurrence: None)
  Receive Date: 20040910
  Receipt Date: 20040902
  Transmission Date: 20050211
  Serious: Yes (Hospitalization)
  Sender: FDA-Public Use
  Company Number: US-ROCHE-379394

PATIENT
  Age: 46 Year
  Sex: Male
  Weight: 89.8 kg

DRUGS (2)
  1. PEG-INTERFERON ALFA 2A (RO 25-8310) [Suspect]
     Route: 058
     Dates: start: 20030606, end: 20040430
  2. BLINDED THYMOSIN ALFA 1 [Suspect]
     Route: 050
     Dates: start: 20030607, end: 20040505

REACTIONS (1)
  - LEUKAEMIA [None]
